FAERS Safety Report 12928868 (Version 3)
Quarter: 2016Q4

REPORT INFORMATION
  Report Type: Spontaneous
  Country: US (occurrence: US)
  Receive Date: 20161110
  Receipt Date: 20161227
  Transmission Date: 20170207
  Serious: Yes (Hospitalization, Other)
  Sender: FDA-Public Use
  Company Number: US-BAYER-2016-210966

PATIENT
  Age: 56 Year
  Sex: Female
  Weight: 96.9 kg

DRUGS (14)
  1. LIPITOR [Concomitant]
     Active Substance: ATORVASTATIN CALCIUM
     Indication: HYPERCHOLESTEROLAEMIA
     Dosage: 80 MG, UNK
     Dates: start: 20160909
  2. NORCO [Concomitant]
     Active Substance: ACETAMINOPHEN\HYDROCODONE BITARTRATE
     Indication: OSTEOARTHRITIS
     Dosage: 10/35MG, PRN
     Dates: start: 2013
  3. CATAPRES [Concomitant]
     Active Substance: CLONIDINE HYDROCHLORIDE
     Indication: ANXIETY
     Dosage: `0.3 MG, BID
     Dates: start: 20160909
  4. BAYER LOW DOSE [Suspect]
     Active Substance: ASPIRIN
     Indication: CORONARY ARTERY DISEASE
     Dosage: 1 DF, QD
     Route: 048
     Dates: start: 20160909, end: 20161005
  5. PLAVIX [Suspect]
     Active Substance: CLOPIDOGREL BISULFATE
     Indication: ACUTE MYOCARDIAL INFARCTION
     Dosage: 75 MG, QD
     Route: 048
     Dates: start: 20160909, end: 20161005
  6. CELEBREX [Suspect]
     Active Substance: CELECOXIB
     Indication: OSTEOARTHRITIS
     Dosage: 100 MG, BID
     Dates: start: 2013, end: 20161005
  7. CELEBREX [Suspect]
     Active Substance: CELECOXIB
     Indication: ARTHRITIS
  8. METOPROLOL. [Concomitant]
     Active Substance: METOPROLOL
     Indication: CORONARY ARTERY DISEASE
     Dosage: 100 MG, BID
  9. BAYER LOW DOSE [Suspect]
     Active Substance: ASPIRIN
     Indication: CORONARY ARTERY DISEASE
     Dosage: 1 DF, QD
     Route: 048
     Dates: start: 20161007
  10. LOSARTAN. [Concomitant]
     Active Substance: LOSARTAN
     Indication: HYPERTENSION
     Dosage: 100 MG, QD
  11. METFORMIN [Concomitant]
     Active Substance: METFORMIN HYDROCHLORIDE
     Indication: DIABETES MELLITUS
     Dosage: 500 MG, QD
     Dates: start: 2012
  12. PLAVIX [Suspect]
     Active Substance: CLOPIDOGREL BISULFATE
     Indication: ACUTE MYOCARDIAL INFARCTION
     Dosage: 75 MG, QD
     Dates: start: 20161007
  13. LIPITOR [Concomitant]
     Active Substance: ATORVASTATIN CALCIUM
     Indication: HYPERCHOLESTEROLAEMIA
     Dosage: 20/40 MG, QD
     Dates: start: 201503, end: 20161006
  14. PAXIL [Concomitant]
     Active Substance: PAROXETINE HYDROCHLORIDE
     Indication: ANXIETY
     Dosage: 20 MG, HS
     Route: 048
     Dates: start: 20160909

REACTIONS (8)
  - Rectal haemorrhage [Recovered/Resolved]
  - Gastrointestinal injury [Recovered/Resolved]
  - Oesophageal ulcer [Recovered/Resolved]
  - Gastrointestinal ulcer haemorrhage [Unknown]
  - Gastrointestinal haemorrhage [Recovered/Resolved]
  - Gastric ulcer [Recovered/Resolved]
  - Haemorrhagic anaemia [Recovered/Resolved]
  - Gastrointestinal inflammation [Recovered/Resolved]

NARRATIVE: CASE EVENT DATE: 201610
